FAERS Safety Report 17766508 (Version 3)
Quarter: 2020Q3

REPORT INFORMATION
  Report Type: Report from Study
  Country: IE (occurrence: IE)
  Receive Date: 20200511
  Receipt Date: 20200921
  Transmission Date: 20201102
  Serious: Yes (Other)
  Sender: FDA-Public Use
  Company Number: IE-JNJFOC-20200502358

PATIENT
  Age: 37 Year
  Sex: Male
  Weight: 146 kg

DRUGS (11)
  1. EDOXABAN [Concomitant]
     Active Substance: EDOXABAN TOSYLATE
  2. BISOPROLOL [Concomitant]
     Active Substance: BISOPROLOL
  3. DIGOXIN. [Concomitant]
     Active Substance: DIGOXIN
  4. ATORVASTATIN [Concomitant]
     Active Substance: ATORVASTATIN
  5. STELARA [Suspect]
     Active Substance: USTEKINUMAB
  6. METFORMIN [Concomitant]
     Active Substance: METFORMIN HYDROCHLORIDE
  7. STELARA [Suspect]
     Active Substance: USTEKINUMAB
     Indication: PSORIASIS
     Route: 058
     Dates: start: 20200110
  8. SERTRALINE [Concomitant]
     Active Substance: SERTRALINE HYDROCHLORIDE
  9. RAMIPRIL. [Concomitant]
     Active Substance: RAMIPRIL
  10. FUROSEMIDE. [Concomitant]
     Active Substance: FUROSEMIDE
  11. DIGITOXIN [Concomitant]
     Active Substance: DIGITOXIN

REACTIONS (1)
  - Cellulitis [Recovered/Resolved]

NARRATIVE: CASE EVENT DATE: 202003
